FAERS Safety Report 13132664 (Version 1)
Quarter: 2017Q1

REPORT INFORMATION
  Report Type: Spontaneous
  Country: PL (occurrence: PL)
  Receive Date: 20170120
  Receipt Date: 20170120
  Transmission Date: 20170428
  Serious: Yes (Other)
  Sender: FDA-Public Use
  Company Number: PL-SUN PHARMACEUTICAL INDUSTRIES LTD-2016R1-126557

PATIENT
  Age: 76 Year
  Sex: Male

DRUGS (2)
  1. ETOPOSIDE. [Suspect]
     Active Substance: ETOPOSIDE
     Indication: SMALL CELL LUNG CANCER
     Dosage: 1X170MG/3DAYS
     Route: 065
     Dates: start: 201211
  2. CARBOPLATIN. [Suspect]
     Active Substance: CARBOPLATIN
     Indication: SMALL CELL LUNG CANCER
     Dosage: 4 CHEMOTHERAPY CYCLES 1X350MG
     Route: 065
     Dates: start: 201211

REACTIONS (7)
  - Decreased appetite [Unknown]
  - Balance disorder [Unknown]
  - Crying [Unknown]
  - Neuropathy peripheral [Recovering/Resolving]
  - Quality of life decreased [Unknown]
  - Depression [Unknown]
  - Memory impairment [Unknown]

NARRATIVE: CASE EVENT DATE: 2014
